FAERS Safety Report 7677719-2 (Version None)
Quarter: 2011Q3

REPORT INFORMATION
  Report Type: 
  Country: None (occurrence: None)
  Receive Date: 20110811
  Receipt Date: 20110808
  Transmission Date: 20111222
  Serious: Yes (Death, Other)
  Sender: FDA-Public Use
  Company Number: PHHY2011US00928

PATIENT
  Sex: Male

DRUGS (18)
  1. SINEMET [Concomitant]
     Route: 065
  2. CITALOPRAM [Concomitant]
     Dosage: 40 MG, DAILY
     Route: 065
  3. FOLIC ACID [Concomitant]
     Dosage: 1 MG, DAILY
     Route: 065
  4. ENSURE [Concomitant]
     Dosage: UNK UKN, BID
     Route: 065
  5. POTASSIUM [Concomitant]
     Dosage: 10 MEQ, DAILY
     Route: 065
  6. LASIX [Concomitant]
     Dosage: 40 MG, DAILY
     Route: 065
  7. LANOXIN [Concomitant]
     Dosage: 0.125 MG, DAILY
     Route: 065
  8. ATENOLOL [Concomitant]
     Dosage: 25 MG, BID
     Route: 065
  9. PRAVASTATIN [Concomitant]
     Dosage: 40 MG, DAILY AT BEDTIME
  10. ASPIRIN [Concomitant]
     Dosage: 81 MG, DAILY
     Route: 065
  11. CLINDAMYCIN [Concomitant]
     Dosage: 150 MG, QID
     Route: 065
     Dates: start: 20101108
  12. TRILEPTAL [Concomitant]
     Dosage: 1 DF, TID
     Route: 065
  13. GLEEVEC [Suspect]
     Indication: GASTROINTESTINAL STROMAL TUMOUR
     Dosage: 400 MG, DAILY
     Route: 048
     Dates: start: 20101119, end: 20101222
  14. DOCUSATE SODIUM W/SENNA [Concomitant]
     Dosage: 1 DF, DAILY
     Route: 065
  15. GLIPIZIDE [Concomitant]
     Dosage: 2.5 MG, DAILY
     Route: 065
  16. PLAVIX [Concomitant]
     Dosage: 75 MG, DAILY
     Route: 065
  17. DURAGESIC-100 [Concomitant]
     Dosage: 25 UG, EVERY 3 DAYS
     Route: 065
  18. DILAUDID [Concomitant]
     Indication: PAIN
     Dosage: 2 MG, ONE TO TWO TABLETS EVERY 4 HOURS
     Route: 065

REACTIONS (6)
  - FAILURE TO THRIVE [None]
  - DEATH [None]
  - DECUBITUS ULCER [None]
  - ASTHENIA [None]
  - FLUID OVERLOAD [None]
  - MOBILITY DECREASED [None]
